FAERS Safety Report 5224001-9 (Version None)
Quarter: 2007Q1

REPORT INFORMATION
  Report Type: 
  Country: None (occurrence: None)
  Receive Date: 20070130
  Receipt Date: 20070119
  Transmission Date: 20070707
  Serious: Yes (Hospitalization)
  Sender: FDA-Public Use
  Company Number: JP-ROCHE-477110

PATIENT
  Age: 70 Year
  Sex: Male
  Weight: 57 kg

DRUGS (6)
  1. ROCEPHIN [Suspect]
     Indication: LOWER RESPIRATORY TRACT INFECTION
     Route: 041
     Dates: start: 20061220, end: 20061221
  2. IBUPROFEN [Suspect]
     Indication: LOWER RESPIRATORY TRACT INFECTION
     Route: 048
     Dates: start: 20061214, end: 20061219
  3. LINCOCIN [Suspect]
     Indication: LOWER RESPIRATORY TRACT INFECTION
     Route: 041
     Dates: start: 20061214, end: 20061219
  4. PL [Suspect]
     Indication: LOWER RESPIRATORY TRACT INFECTION
     Route: 048
     Dates: start: 20061214, end: 20061219
  5. CEPHALEXIN [Suspect]
     Indication: LOWER RESPIRATORY TRACT INFECTION
     Route: 048
     Dates: start: 20061214, end: 20061219
  6. CLARITHROMYCIN [Suspect]
     Indication: LOWER RESPIRATORY TRACT INFECTION
     Route: 048
     Dates: start: 20061220, end: 20061221

REACTIONS (1)
  - PANCYTOPENIA [None]
